FAERS Safety Report 20689940 (Version 1)
Quarter: 2022Q2

REPORT INFORMATION
  Report Type: Spontaneous
  Country: US (occurrence: US)
  Receive Date: 20220408
  Receipt Date: 20220408
  Transmission Date: 20220721
  Serious: Yes (Other)
  Sender: FDA-Public Use
  Company Number: US-PFIZER INC-202200452147

PATIENT
  Age: 86 Year
  Sex: Male

DRUGS (2)
  1. EUCRISA [Suspect]
     Active Substance: CRISABOROLE
     Dosage: ALL OVER BODY QD
  2. EUCRISA [Suspect]
     Active Substance: CRISABOROLE
     Dosage: ALL OVER BODY

REACTIONS (3)
  - Pancreatic carcinoma [Unknown]
  - Illness [Unknown]
  - Off label use [Unknown]
